FAERS Safety Report 14629333 (Version 1)
Quarter: 2018Q1

REPORT INFORMATION
  Report Type: Spontaneous
  Country: US (occurrence: US)
  Receive Date: 20180312
  Receipt Date: 20180312
  Transmission Date: 20180509
  Serious: Yes (Other)
  Sender: FDA-Public Use
  Company Number: None

PATIENT
  Age: 47 Year
  Sex: Female
  Weight: 92.7 kg

DRUGS (2)
  1. WATER PILL FLECAINIDE [Concomitant]
  2. SAXENDA [Suspect]
     Active Substance: LIRAGLUTIDE
     Indication: WEIGHT DECREASED
     Dates: start: 20180119, end: 20180221

REACTIONS (6)
  - Therapy change [None]
  - Injection site erythema [None]
  - Injection site pruritus [None]
  - Rash erythematous [None]
  - Rash pruritic [None]
  - Injection site mass [None]

NARRATIVE: CASE EVENT DATE: 20180215
